FAERS Safety Report 9378898 (Version 2)
Quarter: 2013Q3

REPORT INFORMATION
  Report Type: Spontaneous
  Country: US (occurrence: US)
  Receive Date: 20130702
  Receipt Date: 20130726
  Transmission Date: 20140515
  Serious: Yes (Other)
  Sender: FDA-Public Use
  Company Number: US-PFIZER INC-2013192550

PATIENT
  Sex: Female

DRUGS (1)
  1. NORVASC [Suspect]
     Dosage: UNK

REACTIONS (3)
  - Bulbar palsy [Unknown]
  - Nervous system disorder [Unknown]
  - Aphasia [Unknown]
